FAERS Safety Report 6442051-1 (Version None)
Quarter: 2009Q4

REPORT INFORMATION
  Report Type: 
  Country: None (occurrence: None)
  Receive Date: 20091116
  Receipt Date: 20091105
  Transmission Date: 20100525
  Serious: Yes (Hospitalization, Other)
  Sender: FDA-Public Use
  Company Number: IN-BAXTER-2009BH013697

PATIENT
  Age: 67 Year
  Sex: Female

DRUGS (1)
  1. DIANEAL [Suspect]
     Indication: PERITONEAL DIALYSIS
     Route: 033
     Dates: start: 20090823

REACTIONS (5)
  - DIARRHOEA [None]
  - HAEMOGLOBIN DECREASED [None]
  - HYPOTENSION [None]
  - MELAENA [None]
  - PERITONITIS [None]
